FAERS Safety Report 11865095 (Version 2)
Quarter: 2016Q1

REPORT INFORMATION
  Report Type: Report from Study
  Country: US (occurrence: US)
  Receive Date: 20151223
  Receipt Date: 20160104
  Transmission Date: 20160526
  Serious: Yes (Life-Threatening, Hospitalization, Other)
  Sender: FDA-Public Use
  Company Number: US-BAYER-2015-494278

PATIENT
  Age: 63 Year
  Sex: Female
  Weight: 51.3 kg

DRUGS (13)
  1. REFAMETINIB [Suspect]
     Active Substance: REFAMETINIB
     Indication: NON-SMALL CELL LUNG CANCER
     Dosage: DAILY DOSE 20 MG
     Route: 048
     Dates: start: 20151128, end: 20151129
  2. REGORAFENIB [Suspect]
     Active Substance: REGORAFENIB
     Indication: NON-SMALL CELL LUNG CANCER
     Dosage: DAILY DOSE 60 MG
     Route: 048
     Dates: start: 20150811, end: 20150826
  3. REFAMETINIB [Suspect]
     Active Substance: REFAMETINIB
     Indication: NON-SMALL CELL LUNG CANCER
     Dosage: 20 MG, BID
     Route: 048
     Dates: start: 20150422, end: 20150504
  4. REFAMETINIB [Suspect]
     Active Substance: REFAMETINIB
     Indication: NON-SMALL CELL LUNG CANCER
     Dosage: DAILY DOSE 20 MG
     Route: 048
     Dates: start: 20150505, end: 20150727
  5. REGORAFENIB [Suspect]
     Active Substance: REGORAFENIB
     Indication: NON-SMALL CELL LUNG CANCER
     Dosage: DAILY DOSE 60 MG
     Route: 048
     Dates: start: 20150902, end: 20151019
  6. REFAMETINIB [Suspect]
     Active Substance: REFAMETINIB
     Indication: NON-SMALL CELL LUNG CANCER
     Dosage: DAILY DOSE 20 MG
     Route: 048
     Dates: start: 20150807, end: 20150920
  7. REFAMETINIB [Suspect]
     Active Substance: REFAMETINIB
     Indication: NON-SMALL CELL LUNG CANCER
     Dosage: DAILY DOSE 20 MG
     Route: 048
     Dates: start: 20151007, end: 20151019
  8. REGORAFENIB [Suspect]
     Active Substance: REGORAFENIB
     Indication: NON-SMALL CELL LUNG CANCER
     Dosage: DAILY DOSE 80 MG
     Route: 048
     Dates: start: 20150519, end: 20150727
  9. REFAMETINIB [Suspect]
     Active Substance: REFAMETINIB
     Indication: NON-SMALL CELL LUNG CANCER
     Dosage: DAILY DOSE 20 MG
     Route: 048
     Dates: start: 20151024, end: 20151127
  10. REGORAFENIB [Suspect]
     Active Substance: REGORAFENIB
     Indication: NON-SMALL CELL LUNG CANCER
     Dosage: DAILY DOSE 120 MG
     Route: 048
     Dates: start: 20150421, end: 20150504
  11. REFAMETINIB [Suspect]
     Active Substance: REFAMETINIB
     Indication: NON-SMALL CELL LUNG CANCER
     Dosage: DAILY DOSE 20 MG
     Route: 048
     Dates: start: 20150421, end: 20150421
  12. REFAMETINIB [Suspect]
     Active Substance: REFAMETINIB
     Indication: NON-SMALL CELL LUNG CANCER
     Dosage: DAILY DOSE 20 MG
     Route: 048
     Dates: start: 20151130, end: 20151201
  13. REGORAFENIB [Suspect]
     Active Substance: REGORAFENIB
     Indication: NON-SMALL CELL LUNG CANCER
     Dosage: DAILY DOSE 60 MG
     Route: 048
     Dates: start: 20151024, end: 20151124

REACTIONS (2)
  - Dyspnoea [Not Recovered/Not Resolved]
  - Embolism [Not Recovered/Not Resolved]

NARRATIVE: CASE EVENT DATE: 20151220
